FAERS Safety Report 20716182 (Version 1)
Quarter: 2022Q2

REPORT INFORMATION
  Report Type: Spontaneous
  Country: US (occurrence: US)
  Receive Date: 20220416
  Receipt Date: 20220416
  Transmission Date: 20220721
  Serious: No
  Sender: FDA-Public Use
  Company Number: US-ENDO PHARMACEUTICALS INC-2022-000709

PATIENT
  Sex: Male

DRUGS (1)
  1. AVEED [Suspect]
     Active Substance: TESTOSTERONE UNDECANOATE
     Indication: Hypogonadism male
     Dosage: 3 ML, ONCE EVERY 10WK
     Route: 030
     Dates: start: 201607

REACTIONS (2)
  - Asthenia [Unknown]
  - Fatigue [Unknown]
